FAERS Safety Report 6261445-0 (Version None)
Quarter: 2009Q3

REPORT INFORMATION
  Report Type: 
  Country: None (occurrence: None)
  Receive Date: 20090709
  Receipt Date: 20090630
  Transmission Date: 20100115
  Serious: Yes (Disabling)
  Sender: FDA-Public Use
  Company Number: DK-ASTRAZENECA-2009SE03941

PATIENT
  Age: 18426 Day
  Sex: Male
  Weight: 80 kg

DRUGS (1)
  1. NEXIUM [Suspect]
     Indication: DYSPEPSIA
     Route: 048
     Dates: start: 20070201, end: 20071201

REACTIONS (8)
  - C-REACTIVE PROTEIN INCREASED [None]
  - FATIGUE [None]
  - FLANK PAIN [None]
  - HEPATIC ENZYME ABNORMAL [None]
  - MALAISE [None]
  - MYALGIA [None]
  - RED BLOOD CELL SEDIMENTATION RATE INCREASED [None]
  - WEIGHT DECREASED [None]
